FAERS Safety Report 7717695-7 (Version None)
Quarter: 2011Q3

REPORT INFORMATION
  Report Type: 
  Country: None (occurrence: None)
  Receive Date: 20110830
  Receipt Date: 20110820
  Transmission Date: 20111222
  Serious: Yes (Other)
  Sender: FDA-Public Use
  Company Number: US-US-EMD SERONO, INC.-7025778

PATIENT
  Sex: Female

DRUGS (2)
  1. REBIF [Suspect]
     Indication: MULTIPLE SCLEROSIS
     Route: 058
     Dates: start: 20090805
  2. NAPROXEN [Concomitant]
     Indication: PREMEDICATION

REACTIONS (2)
  - RETINAL VASCULAR DISORDER [None]
  - ARTHRALGIA [None]
